FAERS Safety Report 17834976 (Version 1)
Quarter: 2020Q2

REPORT INFORMATION
  Report Type: Spontaneous
  Country: CA (occurrence: CA)
  Receive Date: 20200528
  Receipt Date: 20200528
  Transmission Date: 20200714
  Serious: Yes (Other)
  Sender: FDA-Public Use
  Company Number: CA-TEVA-2020-CA-1240422

PATIENT
  Age: 68 Year
  Sex: Female
  Weight: 56 kg

DRUGS (3)
  1. REMIFENTANIL [Concomitant]
     Active Substance: REMIFENTANIL
  2. MIDAZOLAM. [Concomitant]
     Active Substance: MIDAZOLAM
  3. PROPOFOL. [Suspect]
     Active Substance: PROPOFOL
     Indication: PRODUCT USED FOR UNKNOWN INDICATION
     Route: 042

REACTIONS (2)
  - Transaminases increased [Unknown]
  - Drug-induced liver injury [Unknown]
